FAERS Safety Report 5562739-4 (Version None)
Quarter: 2007Q4

REPORT INFORMATION
  Report Type: 
  Country: None (occurrence: None)
  Receive Date: 20071211
  Receipt Date: 20071211
  Transmission Date: 20080405
  Serious: Yes (Other)
  Sender: FDA-Public Use
  Company Number: None

PATIENT
  Age: 77 Year
  Sex: Male
  Weight: 88.4514 kg

DRUGS (1)
  1. GENTAMICIN [Suspect]
     Indication: CONJUNCTIVITIS
     Dosage: 1 DROP  DAILY  OPHTHALMIC
     Route: 047
     Dates: start: 20071206, end: 20071207

REACTIONS (1)
  - VISION BLURRED [None]
